FAERS Safety Report 9929163 (Version 1)
Quarter: 2014Q1

REPORT INFORMATION
  Report Type: Spontaneous
  Country: US (occurrence: None)
  Receive Date: 20140224
  Receipt Date: 20140224
  Transmission Date: 20141002
  Serious: Yes (Death, Hospitalization)
  Sender: FDA-Public Use
  Company Number: NSR_01520_2014

PATIENT
  Age: 53 Year
  Sex: Male

DRUGS (2)
  1. PROPRANOLOL [Suspect]
     Indication: PRODUCT USED FOR UNKNOWN INDICATION
     Dosage: [ONE-MONTH SUPPLY]
  2. DILTIAZEM [Suspect]
     Indication: PRODUCT USED FOR UNKNOWN INDICATION
     Dosage: [ONE-MONTH SUPPLY]

REACTIONS (7)
  - Poisoning [None]
  - Cardiogenic shock [None]
  - Overdose [None]
  - Multi-organ failure [None]
  - Bradycardia [None]
  - Cardiac arrest [None]
  - Drug interaction [None]
